FAERS Safety Report 8445046-1 (Version None)
Quarter: 2012Q2

REPORT INFORMATION
  Report Type: 
  Country: None (occurrence: None)
  Receive Date: 20120618
  Receipt Date: 20120608
  Transmission Date: 20120825
  Serious: Yes (Death, Life-Threatening)
  Sender: FDA-Public Use
  Company Number: FR-ACTELION-A-CH2012-61674

PATIENT
  Sex: Male

DRUGS (12)
  1. NORFLOXACIN [Suspect]
     Dosage: UNK
     Dates: start: 20111213, end: 20120118
  2. TRACLEER [Suspect]
     Indication: PRODUCT USED FOR UNKNOWN INDICATION
     Dosage: UNK
     Route: 048
     Dates: start: 20111129, end: 20120120
  3. ALFUZOSIN HCL [Suspect]
     Dosage: UNK
     Dates: start: 20111208, end: 20120118
  4. NEXIUM [Concomitant]
  5. IMOVANE [Suspect]
     Dosage: UNK
     Dates: start: 20111201, end: 20120118
  6. REVATIO [Suspect]
     Dosage: UNK
     Dates: start: 20120115, end: 20120120
  7. PAROXETINE HCL [Suspect]
     Dosage: UNK
     Dates: start: 20120112, end: 20120118
  8. XANAX [Suspect]
     Dosage: UNK
     Dates: start: 20120107, end: 20120118
  9. REVATIO [Suspect]
     Dosage: UNK
     Dates: start: 20111123, end: 20111129
  10. PREDNISOLONE [Suspect]
     Dosage: UNK
     Dates: start: 20111201, end: 20120121
  11. PROSCAR [Suspect]
     Dosage: UNK
     Dates: start: 20120110, end: 20120118
  12. PROCORALAN [Concomitant]
     Dosage: UNK
     Dates: end: 20120121

REACTIONS (7)
  - OROPHARYNGEAL DISCOMFORT [None]
  - RASH ERYTHEMATOUS [None]
  - DERMATITIS BULLOUS [None]
  - NIKOLSKY'S SIGN [None]
  - OESOPHAGEAL DISORDER [None]
  - TOXIC EPIDERMAL NECROLYSIS [None]
  - CARDIO-RESPIRATORY ARREST [None]
